FAERS Safety Report 16924602 (Version 2)
Quarter: 2019Q4

REPORT INFORMATION
  Report Type: Spontaneous
  Country: US (occurrence: US)
  Receive Date: 20191016
  Receipt Date: 20191101
  Transmission Date: 20200122
  Serious: Yes (Hospitalization, Other)
  Sender: FDA-Public Use
  Company Number: US-RISING PHARMACEUTICALS, INC.-2019RIS00528

PATIENT
  Age: 38 Year
  Sex: Female
  Weight: 73.92 kg

DRUGS (35)
  1. XYZAL [Concomitant]
     Active Substance: LEVOCETIRIZINE DIHYDROCHLORIDE
     Dosage: 5 MG, 2X/DAY
  2. CLONIDINE. [Concomitant]
     Active Substance: CLONIDINE
     Dosage: 0.1 MG, 2X/DAY
  3. VITAMIN B2 [Concomitant]
     Active Substance: RIBOFLAVIN
     Dosage: 200 MG, 2X/DAY
  4. TYLENOL [Concomitant]
     Active Substance: ACETAMINOPHEN
     Dosage: UNK, AS NEEDED
  5. ZILEUTON. [Suspect]
     Active Substance: ZILEUTON
     Indication: ASTHMA
     Dosage: 2 TABLETS, 2X/DAY
     Dates: start: 2018
  6. AZELASTINE NASAL SPRAY [Concomitant]
     Active Substance: AZELASTINE
  7. ZOVIRAX [Concomitant]
     Active Substance: ACYCLOVIR
     Dosage: UNK, AS NEEDED
  8. CORLANOR [Concomitant]
     Active Substance: IVABRADINE HYDROCHLORIDE
     Dosage: 5 MG, 1X/DAY
  9. FLUTICASONE NASAL SPRAY [Concomitant]
     Active Substance: FLUTICASONE
  10. GUAIFENESIN. [Concomitant]
     Active Substance: GUAIFENESIN
     Dosage: 1200 MG, UP TO 2X/DAY AS NEEDED
  11. DIPHENHYDRAMINE HYDROCHLORIDE. [Concomitant]
     Active Substance: DIPHENHYDRAMINE HYDROCHLORIDE
     Dosage: 50 MG, UP TO 6X/DAY
  12. VALACYCLOVIR [Concomitant]
     Active Substance: VALACYCLOVIR HYDROCHLORIDE
     Dosage: 2 G, AS NEEDED
  13. LIDOCAINE PATCHES [Concomitant]
     Active Substance: LIDOCAINE
     Dosage: UNK, AS NEEDED
  14. PANTOPRAZOLE [Concomitant]
     Active Substance: PANTOPRAZOLE
     Dosage: 40 MG, 2X/DAY
  15. FLOVENT [Concomitant]
     Active Substance: FLUTICASONE PROPIONATE
     Dosage: 2 DOSAGE UNITS, 2X/DAY
  16. VITAMIN C [Concomitant]
     Active Substance: ASCORBIC ACID
     Dosage: 600 MG, 2X/DAY
  17. UBIQUINOL [Concomitant]
     Active Substance: UBIQUINOL
     Dosage: 100 MG, 2X/DAY
  18. EPIPEN [Concomitant]
     Active Substance: EPINEPHRINE
     Dosage: UNK, AS NEEDED
  19. PREDNISONE. [Concomitant]
     Active Substance: PREDNISONE
     Dosage: 12 MG
  20. CETIRIZINE [Concomitant]
     Active Substance: CETIRIZINE HYDROCHLORIDE
     Dosage: 10 MG, 2X/DAY
  21. MIRTAZAPINE. [Concomitant]
     Active Substance: MIRTAZAPINE
     Dosage: 15 MG, 1X/DAY
  22. VITAMIN D [Concomitant]
     Active Substance: VITAMIN D NOS
     Dosage: 50000 IU, 1X/WEEK
  23. MAGNESIUM [Concomitant]
     Active Substance: MAGNESIUM
     Dosage: 400 MG, 1X/DAY
  24. PEPCID [Concomitant]
     Active Substance: FAMOTIDINE
     Dosage: UNK, AS NEEDED
  25. HYDROXYZINE [Concomitant]
     Active Substance: HYDROXYZINE HYDROCHLORIDE
     Dosage: UNK, AS NEEDED
  26. ZANTAC [Concomitant]
     Active Substance: RANITIDINE HYDROCHLORIDE
     Dosage: 150 MG, 2X/DAY
  27. DAILY MULTIVITAMIN [Concomitant]
     Active Substance: VITAMINS
  28. ALPRAZOLAM. [Concomitant]
     Active Substance: ALPRAZOLAM
     Dosage: 0.25 MG, AS NEEDED
  29. ALBUTEROL INHALER [Concomitant]
     Active Substance: ALBUTEROL
     Dosage: UNK, AS NEEDED
  30. L-LYSINE [Concomitant]
     Active Substance: LYSINE
     Dosage: 500 MG, 1X/DAY
  31. QUERCETIN [Concomitant]
     Active Substance: QUERCETIN
     Dosage: 500 MG, 3X/DAY
  32. VALACYCLOVIR [Concomitant]
     Active Substance: VALACYCLOVIR HYDROCHLORIDE
     Dosage: 1 G, AS NEEDED
  33. PHENYLCHOLINE [Suspect]
     Active Substance: UNSPECIFIED INGREDIENT
     Indication: BRONCHOSCOPY
     Dosage: UNK
     Dates: start: 20191015, end: 201910
  34. ATORVASTATIN [Concomitant]
     Active Substance: ATORVASTATIN
     Dosage: 20 MG, 1X/DAY
  35. KETOTIFEN [Concomitant]
     Active Substance: KETOTIFEN
     Dosage: 2 MG, 4X/DAY

REACTIONS (13)
  - Product residue present [Not Recovered/Not Resolved]
  - Constipation [Recovered/Resolved]
  - Anaphylactic reaction [Unknown]
  - Asthma [Recovering/Resolving]
  - Pneumonia [Unknown]
  - Therapeutic product effect incomplete [Not Recovered/Not Resolved]
  - Bronchitis [Unknown]
  - Gastrointestinal motility disorder [Not Recovered/Not Resolved]
  - Malabsorption [Unknown]
  - Productive cough [Unknown]
  - Diarrhoea [Not Recovered/Not Resolved]
  - Nausea [Unknown]
  - Gallbladder disorder [Unknown]

NARRATIVE: CASE EVENT DATE: 2019
